FAERS Safety Report 13847884 (Version 1)
Quarter: 2017Q3

REPORT INFORMATION
  Report Type: Spontaneous
  Country: US (occurrence: US)
  Receive Date: 20170809
  Receipt Date: 20170809
  Transmission Date: 20171127
  Serious: No
  Sender: FDA-Public Use
  Company Number: US-PURDUE-USA-2017-0139866

PATIENT
  Sex: Female

DRUGS (1)
  1. BUPRENORPHINE TRANSDERMAL PATCH (SIMILAR TO NDA 21-306) [Suspect]
     Active Substance: BUPRENORPHINE
     Dosage: 15 MCG/HR, WEEKLY
     Route: 062
     Dates: start: 20170707

REACTIONS (6)
  - Pain [Recovered/Resolved]
  - Chills [Unknown]
  - Drug effect decreased [Unknown]
  - Drug withdrawal syndrome [Unknown]
  - Drug ineffective [Unknown]
  - Inappropriate schedule of drug administration [Unknown]

NARRATIVE: CASE EVENT DATE: 20170707
